FAERS Safety Report 5994772-2 (Version None)
Quarter: 2008Q4

REPORT INFORMATION
  Report Type: 
  Country: None (occurrence: None)
  Receive Date: 20081212
  Receipt Date: 20080912
  Transmission Date: 20090506
  Serious: No
  Sender: FDA-Public Use
  Company Number: US-ABBOTT-08P-163-0476221-00

PATIENT
  Sex: Male
  Weight: 102.15 kg

DRUGS (3)
  1. HUMIRA [Suspect]
     Indication: PSORIATIC ARTHROPATHY
     Route: 058
     Dates: start: 20080101
  2. HUMIRA [Suspect]
     Indication: PSORIASIS
  3. CITALOPRAM HYDROBROMIDE [Concomitant]
     Indication: DEPRESSION
     Route: 048
     Dates: start: 20060101

REACTIONS (2)
  - INJECTION SITE PAIN [None]
  - INJECTION SITE SWELLING [None]
